FAERS Safety Report 4384705-7 (Version None)
Quarter: 2004Q2

REPORT INFORMATION
  Report Type: 
  Country: None (occurrence: None)
  Receive Date: 20040622
  Receipt Date: 20040622
  Transmission Date: 20050107
  Serious: Yes (Disabling)
  Sender: FDA-Public Use
  Company Number: None

PATIENT
  Sex: Female
  Weight: 76.6579 kg

DRUGS (1)
  1. ZICAM -ZINCUM GLUCONICUM [Suspect]
     Indication: NASOPHARYNGITIS
     Dosage: 1 PUMP EACH NOSTRIL [1 TIME]
     Route: 045
     Dates: start: 20021101

REACTIONS (3)
  - AGEUSIA [None]
  - ANOSMIA [None]
  - BURNING SENSATION [None]
